FAERS Safety Report 6100819-5 (Version None)
Quarter: 2009Q1

REPORT INFORMATION
  Report Type: 
  Country: None (occurrence: None)
  Receive Date: 20090303
  Receipt Date: 20090224
  Transmission Date: 20090719
  Serious: Yes (Other)
  Sender: FDA-Public Use
  Company Number: US-GILEAD-2009-0020518

PATIENT
  Sex: Female

DRUGS (13)
  1. LETAIRIS [Suspect]
     Indication: PULMONARY ARTERIAL HYPERTENSION
     Route: 048
     Dates: start: 20080121
  2. VENTAVIS [Concomitant]
  3. WARFARIN SODIUM [Concomitant]
  4. FUROSEMIDE [Concomitant]
  5. SPIRIVA [Concomitant]
  6. PLAVIX [Concomitant]
  7. ZOCOR [Concomitant]
  8. PREVACID [Concomitant]
  9. KLOR-CON [Concomitant]
  10. FOLIC ACID [Concomitant]
  11. IRON [Concomitant]
  12. CALTRATE [Concomitant]
  13. ZINC [Concomitant]

REACTIONS (1)
  - HEART RATE IRREGULAR [None]
